FAERS Safety Report 4884387-1 (Version None)
Quarter: 2006Q1

REPORT INFORMATION
  Report Type: 
  Country: None (occurrence: None)
  Receive Date: 20060117
  Receipt Date: 20060117
  Transmission Date: 20060701
  Serious: Yes (Other)
  Sender: FDA-Public Use
  Company Number: None

PATIENT
  Age: 16 Year
  Sex: Male

DRUGS (1)
  1. ACTIMMUNE [Suspect]
     Indication: FUNGAL INFECTION
     Dosage: 75 MCG MON - WED - FRI SC
     Route: 058
     Dates: start: 20051116

REACTIONS (1)
  - MEDICATION ERROR [None]
